FAERS Safety Report 13345312 (Version 2)
Quarter: 2017Q1

REPORT INFORMATION
  Report Type: Spontaneous
  Country: PK (occurrence: PK)
  Receive Date: 20170317
  Receipt Date: 20170321
  Transmission Date: 20170428
  Serious: Yes (Other)
  Sender: FDA-Public Use
  Company Number: PK-LUPIN PHARMACEUTICALS INC.-2017-01045

PATIENT
  Age: 72 Year
  Sex: Female

DRUGS (2)
  1. AMIODARONE HYDROCHLORIDE. [Suspect]
     Active Substance: AMIODARONE HYDROCHLORIDE
     Indication: ATRIAL FIBRILLATION
     Dosage: UNKNOWN
     Route: 065
  2. CEFTRIAXONE. [Suspect]
     Active Substance: CEFTRIAXONE
     Indication: INFECTION
     Dosage: UNKNOWN
     Route: 065

REACTIONS (1)
  - Hepatocellular injury [Recovering/Resolving]
